FAERS Safety Report 9006471 (Version 1)
Quarter: 2012Q4

REPORT INFORMATION
  Report Type: Spontaneous
  Country: DK (occurrence: None)
  Receive Date: 20121227
  Receipt Date: 20121227
  Transmission Date: 20130627
  Serious: Yes (Life-Threatening)
  Sender: FDA-Public Use
  Company Number: 2012MA014186

PATIENT
  Age: 91 Year
  Sex: Female

DRUGS (10)
  1. BUTALBITAL, ASPIRIN AND CAFFEINE TABLETS USP, 50 MG/325 MG/40 MG (PUREPAC) (BUTAL BITAL W/ASPIRIN, CAFFEINE) [Suspect]
  2. LEVOTHYROXINE SODIUM [Concomitant]
  3. AMOXICILLILN [Concomitant]
  4. PARACETAMOL [Concomitant]
  5. FUROSEMIDE [Concomitant]
  6. VENTOLIN [Concomitant]
  7. DIGOXIN [Concomitant]
  8. FLUTICASONE [Concomitant]
  9. ESOMEPRAZOLE [Concomitant]
  10. METOCLOPRAMIDE [Concomitant]

REACTIONS (1)
  - Gastric haemorrhage [None]
